FAERS Safety Report 13362081 (Version 1)
Quarter: 2017Q1

REPORT INFORMATION
  Report Type: Spontaneous
  Country: US (occurrence: US)
  Receive Date: 20170321
  Receipt Date: 20170321
  Transmission Date: 20170429
  Serious: Yes (Death)
  Sender: FDA-Public Use
  Company Number: None

PATIENT
  Age: 69 Year
  Sex: Male

DRUGS (1)
  1. NEXAVAR [Suspect]
     Active Substance: SORAFENIB
     Indication: HEPATIC CANCER
     Dosage: TWICE A DAY FOR 14 DAYS THEN 7 DAYS OFF
     Route: 048
     Dates: start: 20161217

REACTIONS (1)
  - Death [None]

NARRATIVE: CASE EVENT DATE: 20170304
